FAERS Safety Report 8125180-6 (Version None)
Quarter: 2012Q1

REPORT INFORMATION
  Report Type: 
  Country: None (occurrence: None)
  Receive Date: 20120209
  Receipt Date: 20120131
  Transmission Date: 20120608
  Serious: Yes (Hospitalization)
  Sender: FDA-Public Use
  Company Number: BE-ASTRAZENECA-2011SE70175

PATIENT
  Age: 23295 Day
  Sex: Male

DRUGS (8)
  1. TILDIEM R [Concomitant]
     Indication: HYPERTENSION
     Dosage: STARTED } 1 MONTH PRIOR TO STUDY START
     Route: 048
     Dates: end: 20111107
  2. CLOPIDOGREL [Concomitant]
     Indication: ACUTE MYOCARDIAL INFARCTION
     Dosage: STARTED } 1 MONTH PRIOR TO STUDY START
     Route: 048
     Dates: end: 20110908
  3. SIMVASTATIN [Concomitant]
     Indication: HYPERCHOLESTEROLAEMIA
     Dosage: STARTED } 1 MONTH PRIOR TO STUDY START
     Route: 048
     Dates: end: 20111107
  4. PLAVIX [Suspect]
     Indication: CORONARY ARTERY DISEASE
     Route: 048
     Dates: start: 20110909, end: 20111102
  5. LISINOPRIL [Concomitant]
     Route: 048
     Dates: start: 20111214
  6. ASPIRIN [Concomitant]
     Route: 048
     Dates: start: 20111214
  7. LISINOPRIL [Concomitant]
     Indication: HYPERTENSION
     Dosage: STARTED } 1 MONTH PRIOR TO STUDY START
     Route: 048
     Dates: end: 20111107
  8. ASPIRIN [Concomitant]
     Route: 048
     Dates: end: 20111028

REACTIONS (1)
  - URINARY BLADDER POLYP [None]
